FAERS Safety Report 21260370 (Version 18)
Quarter: 2022Q4

REPORT INFORMATION
  Report Type: Report from Study
  Country: FR (occurrence: None)
  Receive Date: 20220826
  Receipt Date: 20221114
  Transmission Date: 20230113
  Serious: Yes (Hospitalization)
  Sender: FDA-Public Use
  Company Number: FR-Eisai Inc (Eisai China)-EC-2022-121986

PATIENT
  Age: 75 Year
  Sex: Female
  Weight: 54 kg

DRUGS (14)
  1. LENVATINIB [Suspect]
     Active Substance: LENVATINIB
     Indication: Endometrial cancer
     Dosage: STARTING DOSE 20 MILLIGRAM, FLUCTUATED DOSE
     Route: 048
     Dates: start: 20220309, end: 20220808
  2. LENVATINIB [Suspect]
     Active Substance: LENVATINIB
     Route: 048
     Dates: start: 20220901, end: 20220925
  3. PEMBROLIZUMAB [Suspect]
     Active Substance: PEMBROLIZUMAB
     Indication: Endometrial cancer
     Dosage: VIBOSTOLIMAB 200 MG (+) PEMBROLIZUMAB 200 MG (MK-7684A)
     Route: 041
     Dates: start: 20220309, end: 20220816
  4. LEVOTHYROXINE [Concomitant]
     Active Substance: LEVOTHYROXINE
     Dates: start: 20220725
  5. TERALITHE [Concomitant]
     Active Substance: LITHIUM CARBONATE
     Dates: start: 200201
  6. DULCOLAX (BISACODYL) [Concomitant]
     Active Substance: BISACODYL
     Dates: start: 202203
  7. IRBESARTAN [Concomitant]
     Active Substance: IRBESARTAN
     Dates: start: 20020208
  8. LORMETAZEPAM [Concomitant]
     Active Substance: LORMETAZEPAM
     Dates: start: 20220208
  9. DAFALGAN [Concomitant]
     Active Substance: ACETAMINOPHEN
     Dates: start: 20220412
  10. LIPTRUZET [Concomitant]
     Active Substance: ATORVASTATIN CALCIUM\EZETIMIBE
     Dates: start: 20220419
  11. ZOLMITRIPTAN [Concomitant]
     Active Substance: ZOLMITRIPTAN
     Dates: start: 200201
  12. SMECTA [Concomitant]
     Active Substance: MONTMORILLONITE
     Dates: start: 20220712, end: 20220816
  13. CHOLECALCIFEROL [Concomitant]
     Active Substance: CHOLECALCIFEROL
     Dates: start: 20220331
  14. VIBOSTOLIMAB [Suspect]
     Active Substance: VIBOSTOLIMAB

REACTIONS (2)
  - Malnutrition [Not Recovered/Not Resolved]
  - Sepsis [Recovered/Resolved]

NARRATIVE: CASE EVENT DATE: 20220816
